FAERS Safety Report 10272653 (Version 1)
Quarter: 2014Q2

REPORT INFORMATION
  Report Type: Spontaneous
  Country: US (occurrence: None)
  Receive Date: 20140627
  Receipt Date: 20140627
  Transmission Date: 20141212
  Serious: Yes (Life-Threatening, Hospitalization)
  Sender: FDA-Public Use
  Company Number: None

PATIENT
  Age: 74 Year
  Sex: Female
  Weight: 145 kg

DRUGS (3)
  1. ONDANSETRON [Suspect]
     Indication: NAUSEA
     Route: 042
     Dates: start: 20140603, end: 20140603
  2. ONDANSETRON [Suspect]
     Indication: VOMITING
     Route: 042
     Dates: start: 20140603, end: 20140603
  3. MORPHINE [Concomitant]

REACTIONS (5)
  - Pulse absent [None]
  - Ventricular arrhythmia [None]
  - Acute respiratory failure [None]
  - Cardiac arrest [None]
  - Electrocardiogram QT prolonged [None]
